FAERS Safety Report 5227587-3 (Version None)
Quarter: 2007Q1

REPORT INFORMATION
  Report Type: 
  Country: None (occurrence: None)
  Receive Date: 20061201
  Receipt Date: 20061004
  Transmission Date: 20070707
  Serious: No
  Sender: FDA-Public Use
  Company Number: US200610000927

PATIENT
  Age: 29 Year
  Sex: Female

DRUGS (2)
  1. CYMBALTA [Suspect]
     Indication: BIPOLAR I DISORDER
     Dosage: 60 MG
     Dates: start: 20060401, end: 20060901
  2. ZYPREXA [Suspect]
     Indication: BIPOLAR I DISORDER
     Dosage: 10 MG
     Dates: start: 20060401, end: 20060901

REACTIONS (8)
  - DEPRESSION [None]
  - DIZZINESS [None]
  - HEADACHE [None]
  - HEART RATE IRREGULAR [None]
  - HYPOTENSION [None]
  - MALAISE [None]
  - SENSATION OF HEAVINESS [None]
  - VOMITING [None]
